FAERS Safety Report 7207021-4 (Version None)
Quarter: 2011Q1

REPORT INFORMATION
  Report Type: 
  Country: None (occurrence: None)
  Receive Date: 20110103
  Receipt Date: 20101223
  Transmission Date: 20110831
  Serious: Yes (Other)
  Sender: FDA-Public Use
  Company Number: B0677745A

PATIENT
  Sex: Female

DRUGS (10)
  1. MIDAZOLAM HCL [Concomitant]
     Dates: start: 20100901, end: 20100917
  2. MEDIALIPIDE [Concomitant]
     Dates: start: 20100903, end: 20100904
  3. RANITIDINE [Concomitant]
     Dates: start: 20100902, end: 20100904
  4. AZITHROMYCIN [Concomitant]
     Dates: start: 20100901, end: 20100906
  5. FLUCLOXACILLIN [Concomitant]
     Dates: start: 20100901, end: 20100904
  6. MOVICOL [Concomitant]
     Dates: start: 20100904, end: 20100907
  7. MORPHINE [Concomitant]
     Dates: start: 20100901, end: 20100917
  8. CEFTRIAXONE [Concomitant]
     Dates: start: 20100901, end: 20100906
  9. POTASSIUM CHLORIDE [Concomitant]
     Dates: start: 20100902, end: 20100907
  10. ZANAMIVIR [Suspect]
     Dosage: 1200MG PER DAY
     Route: 042
     Dates: start: 20100902, end: 20100907

REACTIONS (2)
  - THROMBOCYTOPENIA [None]
  - DRUG EXPOSURE DURING PREGNANCY [None]
